FAERS Safety Report 7151407-3 (Version None)
Quarter: 2010Q4

REPORT INFORMATION
  Report Type: 
  Country: None (occurrence: None)
  Receive Date: 20101210
  Receipt Date: 20101201
  Transmission Date: 20110411
  Serious: Yes (Life-Threatening, Hospitalization)
  Sender: FDA-Public Use
  Company Number: JP-MERCK-1011USA00889

PATIENT
  Age: 84 Year
  Sex: Male

DRUGS (11)
  1. JANUVIA [Suspect]
     Indication: TYPE 2 DIABETES MELLITUS
     Route: 048
     Dates: start: 20100526, end: 20101006
  2. JANUVIA [Suspect]
     Route: 048
     Dates: start: 20100402, end: 20100525
  3. MAGMITT [Concomitant]
     Route: 065
     Dates: start: 20100401, end: 20101001
  4. BLADDERON [Concomitant]
     Route: 065
  5. METHYCOBAL [Concomitant]
     Route: 065
  6. SINEMET [Concomitant]
     Route: 048
  7. PARIET [Concomitant]
     Route: 065
  8. AMARYL [Concomitant]
     Route: 065
  9. NORVASC [Concomitant]
     Route: 065
  10. PERSANTIN [Concomitant]
     Route: 065
     Dates: start: 20100401
  11. LASIX [Concomitant]
     Route: 065

REACTIONS (2)
  - PLEURAL EFFUSION [None]
  - STAPHYLOCOCCAL INFECTION [None]
